FAERS Safety Report 14961806 (Version 1)
Quarter: 2018Q2

REPORT INFORMATION
  Report Type: Spontaneous
  Country: JP (occurrence: JP)
  Receive Date: 20180601
  Receipt Date: 20180601
  Transmission Date: 20180711
  Serious: Yes (Death, Other)
  Sender: FDA-Public Use
  Company Number: JP-ASTELLAS-2018US025053

PATIENT
  Age: 9 Decade
  Sex: Female

DRUGS (1)
  1. AMPHOTERICIN B, LIPOSOME [Suspect]
     Active Substance: AMPHOTERICIN B
     Indication: MENINGITIS CRYPTOCOCCAL
     Route: 041

REACTIONS (2)
  - Hypokalaemia [Recovering/Resolving]
  - Meningitis cryptococcal [Fatal]

NARRATIVE: CASE EVENT DATE: 201805
